FAERS Safety Report 23379778 (Version 2)
Quarter: 2024Q1

REPORT INFORMATION
  Report Type: Spontaneous
  Country: US (occurrence: US)
  Receive Date: 20240108
  Receipt Date: 20240116
  Transmission Date: 20240410
  Serious: No
  Sender: FDA-Public Use
  Company Number: US-HALEON-USCH2023067833

PATIENT

DRUGS (6)
  1. ADVIL [Suspect]
     Active Substance: IBUPROFEN
     Indication: Nasopharyngitis
     Dosage: UNK
  2. ADVIL [Suspect]
     Active Substance: IBUPROFEN
     Indication: Viral infection
  3. ADVIL [Suspect]
     Active Substance: IBUPROFEN
     Indication: Rhinorrhoea
  4. ADVIL [Suspect]
     Active Substance: IBUPROFEN
     Indication: Pyrexia
  5. ADVIL [Suspect]
     Active Substance: IBUPROFEN
     Indication: Cough
  6. ADVIL [Suspect]
     Active Substance: IBUPROFEN
     Indication: Influenza

REACTIONS (2)
  - Drug effective for unapproved indication [Unknown]
  - Product use in unapproved indication [Unknown]
